FAERS Safety Report 18712547 (Version 1)
Quarter: 2021Q1

REPORT INFORMATION
  Report Type: Spontaneous
  Country: FR (occurrence: FR)
  Receive Date: 20210107
  Receipt Date: 20210107
  Transmission Date: 20210419
  Serious: Yes (Other)
  Sender: FDA-Public Use
  Company Number: FR-TEVA-2021-FR-1865941

PATIENT
  Age: 54 Year
  Sex: Female

DRUGS (3)
  1. LEVOTHYROX [Concomitant]
     Active Substance: LEVOTHYROXINE
     Indication: THYROIDECTOMY
     Dosage: UNKNOWN
     Route: 048
  2. UN?ALFA [Concomitant]
     Active Substance: ALFACALCIDOL
     Indication: THYROIDECTOMY
     Dosage: UNKNOWN
     Route: 048
  3. NAPROXENE [Suspect]
     Active Substance: NAPROXEN
     Indication: MIGRAINE
     Dosage: 1 DOSAGE FORMS
     Route: 048
     Dates: start: 201904, end: 201904

REACTIONS (2)
  - Angioedema [Recovered/Resolved]
  - Dysphagia [Recovered/Resolved]

NARRATIVE: CASE EVENT DATE: 201904
